FAERS Safety Report 4712565-0 (Version None)
Quarter: 2005Q3

REPORT INFORMATION
  Report Type: 
  Country: None (occurrence: None)
  Receive Date: 20050711
  Receipt Date: 20040623
  Transmission Date: 20060218
  Serious: No
  Sender: FDA-Public Use
  Company Number: 207323

PATIENT
  Age: 60 Year
  Sex: Male

DRUGS (20)
  1. RITUXAN [Suspect]
     Indication: LUNG TRANSPLANT REJECTION
     Dosage: 705 MG, 1/WEEK, INTRAVENOUS
     Route: 042
     Dates: start: 20040223, end: 20040315
  2. PROGRAF [Concomitant]
  3. PREDNISONE [Concomitant]
  4. CELLCEPT [Concomitant]
  5. BACTRIM DS [Concomitant]
  6. VORICONAZOLE (VORICONAZOLE) [Concomitant]
  7. AZITHROMYCIN [Concomitant]
  8. LANSOPRAZOLE [Concomitant]
  9. ATORVASTATIN (ATORVASTATIN CALCIUM) [Concomitant]
  10. BENAZEPRIL (BENAZEPRIL HYDROCHLORIDE) [Concomitant]
  11. ALENDRONATE SODIUM [Concomitant]
  12. INSULIN LISPRO (LISPRO INSULIN) [Concomitant]
  13. INSULIN GLARGINE (INSULIN GLARGINE) [Concomitant]
  14. NYSTATIN ORAL (NYSTATIN) [Concomitant]
  15. ENTERIC ASPIRIN (ASPIRIN) [Concomitant]
  16. MULTI-VITAMIN SUPPLEMENT (MULTIVITAMINS NOS) [Concomitant]
  17. CALCIUM (CALCIUM NOS) [Concomitant]
  18. MAGNESIUM OXIDE (MAGNESIUM OXIDE) [Concomitant]
  19. FERROUS SULFATE TAB [Concomitant]
  20. ALBUTEROL (ALBUTEROL, ALBUTEROL SULFATE) [Concomitant]

REACTIONS (9)
  - BLOOD CREATININE INCREASED [None]
  - BLOOD GLUCOSE INCREASED [None]
  - BLOOD UREA INCREASED [None]
  - BRONCHITIS ACUTE [None]
  - BRONCHOPULMONARY ASPERGILLOSIS [None]
  - HAEMATOCRIT DECREASED [None]
  - HAEMOGLOBIN DECREASED [None]
  - LYMPHOCYTE PERCENTAGE DECREASED [None]
  - PLATELET COUNT INCREASED [None]
